FAERS Safety Report 14342210 (Version 2)
Quarter: 2018Q1

REPORT INFORMATION
  Report Type: Report from Study
  Country: UA (occurrence: UA)
  Receive Date: 20180102
  Receipt Date: 20180116
  Transmission Date: 20180509
  Serious: Yes (Other)
  Sender: FDA-Public Use
  Company Number: UA-TEVA-2017-UA-840018

PATIENT
  Age: 2 Year
  Sex: Male
  Weight: 12.5 kg

DRUGS (4)
  1. CYCLOPHOSPHAMID [Suspect]
     Active Substance: CYCLOPHOSPHAMIDE
     Indication: PERIPHERAL PRIMITIVE NEUROECTODERMAL BONE TUMOUR
     Dosage: CYCLE 1. LAST DOSE PRIOR TO SAE: 15-DEC-2017
     Route: 042
     Dates: start: 20171215
  2. DOXORUBICIN [Suspect]
     Active Substance: DOXORUBICIN
     Indication: PERIPHERAL PRIMITIVE NEUROECTODERMAL BONE TUMOUR
     Dosage: CYCLE 1. LAST DOSE PRIOR TO SAE: 15-DEC-2017
     Route: 042
     Dates: start: 20171215
  3. LONQUEX [Suspect]
     Active Substance: LIPEGFILGRASTIM
     Indication: PROPHYLAXIS
     Dosage: OPEN LABEL. LAST DOSE PRIOR TO SAE: 17-DEC-2017
     Route: 058
     Dates: start: 20171217
  4. VINCRISTINE [Suspect]
     Active Substance: VINCRISTINE
     Indication: PERIPHERAL PRIMITIVE NEUROECTODERMAL BONE TUMOUR
     Dosage: CYCLE 1. LAST DOSE PRIOR TO SAE: 15-DEC-2017
     Route: 042
     Dates: start: 20171215

REACTIONS (1)
  - Lymphopenia [Recovered/Resolved]

NARRATIVE: CASE EVENT DATE: 20171221
